FAERS Safety Report 9570282 (Version 1)
Quarter: 2013Q3

REPORT INFORMATION
  Report Type: Spontaneous
  Country: US (occurrence: None)
  Receive Date: 20130926
  Receipt Date: 20130926
  Transmission Date: 20140515
  Serious: Yes (Other)
  Sender: FDA-Public Use
  Company Number: None

PATIENT
  Sex: Female

DRUGS (1)
  1. LEVAQUIN [Suspect]
     Indication: SINUSITIS
     Dates: start: 20130130, end: 20130228

REACTIONS (8)
  - Hypoaesthesia [None]
  - Paraesthesia [None]
  - Burning sensation [None]
  - Pruritus [None]
  - Tinnitus [None]
  - Ear pain [None]
  - Temperature intolerance [None]
  - Rash [None]
